FAERS Safety Report 5164728-0 (Version None)
Quarter: 2006Q4

REPORT INFORMATION
  Report Type: 
  Country: None (occurrence: None)
  Receive Date: 20061205
  Receipt Date: 20061128
  Transmission Date: 20070319
  Serious: Yes (Other)
  Sender: FDA-Public Use
  Company Number: BR-GLAXOSMITHKLINE-A0630125A

PATIENT
  Age: 39 Year
  Sex: Female

DRUGS (2)
  1. WELLBUTRIN XL [Suspect]
     Indication: DEPRESSION
     Dosage: 150MG TWICE PER DAY
     Route: 048
     Dates: start: 20061118
  2. LORAZEPAM [Concomitant]
     Dosage: 4MG PER DAY
     Route: 048
     Dates: start: 20051101

REACTIONS (2)
  - AGGRESSION [None]
  - AGITATION [None]
